FAERS Safety Report 8348073-8 (Version None)
Quarter: 2012Q2

REPORT INFORMATION
  Report Type: 
  Country: None (occurrence: None)
  Receive Date: 20120509
  Receipt Date: 20120430
  Transmission Date: 20120825
  Serious: Yes (Hospitalization, Other)
  Sender: FDA-Public Use
  Company Number: US-BAYER-2011-104193

PATIENT
  Age: 41 Year
  Sex: Female
  Weight: 52.608 kg

DRUGS (7)
  1. DEXILANT [Concomitant]
     Dosage: 60 MG, QD FOR ABOUT 3 DAYS
     Route: 048
  2. ACIDOPHILUS [Concomitant]
     Dosage: UNK
     Dates: start: 20110211, end: 20110222
  3. AMBIEN [Concomitant]
  4. IBUPROFEN (ADVIL) [Concomitant]
     Dosage: 200 MG TABS, UNK
     Dates: start: 20110211, end: 20110222
  5. YAZ [Suspect]
     Indication: CONTRACEPTION
     Dosage: UNK
     Route: 048
     Dates: start: 20010101
  6. VICODIN [Concomitant]
  7. DEXILANT [Concomitant]

REACTIONS (6)
  - HEPATOBILIARY SCAN ABNORMAL [None]
  - INJURY [None]
  - PAIN [None]
  - BILIARY DYSKINESIA [None]
  - EMOTIONAL DISTRESS [None]
  - CHOLECYSTITIS CHRONIC [None]
